FAERS Safety Report 24958706 (Version 1)
Quarter: 2025Q1

REPORT INFORMATION
  Report Type: Spontaneous
  Country: US (occurrence: US)
  Receive Date: 20250212
  Receipt Date: 20250212
  Transmission Date: 20250408
  Serious: No
  Sender: DR REDDYS
  Company Number: None

PATIENT
  Age: 39 Year
  Sex: Male
  Weight: 98.5 kg

DRUGS (4)
  1. PROPOFOL [Suspect]
     Active Substance: PROPOFOL
     Indication: General anaesthesia
     Route: 042
  2. MIDAZOLAM [Concomitant]
     Active Substance: MIDAZOLAM
     Indication: Anaesthetic premedication
     Route: 042
  3. FENTANYL [Concomitant]
     Active Substance: FENTANYL
     Indication: Anaesthetic premedication
     Route: 042
  4. OXYGEN [Concomitant]
     Active Substance: OXYGEN
     Indication: Oxygen therapy
     Dosage: VIA A FACEMASK

REACTIONS (1)
  - Muscle contractions involuntary [Recovered/Resolved]
